FAERS Safety Report 6492261-2 (Version None)
Quarter: 2009Q4

REPORT INFORMATION
  Report Type: 
  Country: None (occurrence: None)
  Receive Date: 20091214
  Receipt Date: 20091130
  Transmission Date: 20100525
  Serious: No
  Sender: FDA-Public Use
  Company Number: PHHY2009JP31762

PATIENT
  Sex: Female

DRUGS (10)
  1. AMN107 AMN+CAP [Suspect]
     Indication: CHRONIC MYELOID LEUKAEMIA
     Dosage: 400 MG DAILY
     Route: 048
     Dates: start: 20090710, end: 20090713
  2. AMN107 AMN+CAP [Suspect]
     Dosage: 800 MG/DAY
     Route: 048
     Dates: start: 20090714, end: 20090727
  3. AMN107 AMN+CAP [Suspect]
     Dosage: 400 MG/DAY
     Route: 048
     Dates: start: 20090803
  4. INTERFERON ALFA [Concomitant]
     Dosage: UNK
     Route: 030
     Dates: start: 19920601, end: 20050801
  5. HYDREA [Concomitant]
     Dosage: UNK
     Route: 048
     Dates: start: 19920601, end: 20050801
  6. BLOPRESS [Concomitant]
     Dosage: 12 MG, UNK
     Route: 048
     Dates: start: 20050901
  7. AMLODIN [Concomitant]
     Dosage: 25 MG, UNK
     Route: 048
     Dates: start: 20050901
  8. ACTOS [Concomitant]
     Dosage: 30 MG, UNK
     Route: 048
     Dates: start: 20050901
  9. LUPRAC [Concomitant]
     Dosage: 4 MG, UNK
     Route: 048
     Dates: start: 20050901
  10. ALDACTONE [Concomitant]
     Dosage: 25 MG, UNK
     Route: 048
     Dates: start: 20050901

REACTIONS (4)
  - ACTIVATED PARTIAL THROMBOPLASTIN TIME SHORTENED [None]
  - BLOOD BILIRUBIN INCREASED [None]
  - ELECTROCARDIOGRAM QT PROLONGED [None]
  - HAEMOGLOBIN DECREASED [None]
